FAERS Safety Report 21152177 (Version 1)
Quarter: 2022Q3

REPORT INFORMATION
  Report Type: Spontaneous
  Country: US (occurrence: US)
  Receive Date: 20220730
  Receipt Date: 20220730
  Transmission Date: 20221027
  Serious: No
  Sender: FDA-Public Use
  Company Number: US-SA-SAC20220725000184

PATIENT
  Sex: Female
  Weight: 60.7 kg

DRUGS (24)
  1. AUBAGIO [Suspect]
     Active Substance: TERIFLUNOMIDE
     Dosage: 14 MG, QD
     Route: 048
     Dates: start: 201903
  2. FISH OIL [Concomitant]
     Active Substance: FISH OIL
     Dosage: 1000 MG
  3. GLUCOSAMINE [Concomitant]
     Active Substance: GLUCOSAMINE
  4. PROAIR HFA [Concomitant]
     Active Substance: ALBUTEROL SULFATE
     Dosage: 90 MCG
  5. GABAPENTIN [Concomitant]
     Active Substance: GABAPENTIN
     Dosage: 300 MG
  6. SERTRALINE [Concomitant]
     Active Substance: SERTRALINE HYDROCHLORIDE
     Dosage: 50MG
  7. DIETARY SUPPLEMENT [Concomitant]
     Active Substance: DIETARY SUPPLEMENT
     Dosage: 600 MG
  8. REGULOID [Concomitant]
     Active Substance: PSYLLIUM HUSK
  9. CALCIUM [Concomitant]
     Active Substance: CALCIUM
     Dosage: 600MG
  10. ZOMIG [Concomitant]
     Active Substance: ZOLMITRIPTAN
     Dosage: 2.5 MG
  11. BETAMETHASONE [Concomitant]
     Active Substance: BETAMETHASONE
     Dosage: 0.05 %
  12. BACLOFEN [Concomitant]
     Active Substance: BACLOFEN
     Dosage: 10 MG
  13. PRAVASTATIN SODIUM [Concomitant]
     Active Substance: PRAVASTATIN SODIUM
     Dosage: 40 MG
  14. TOPROL XL [Concomitant]
     Active Substance: METOPROLOL SUCCINATE
     Dosage: 50MG
  15. ALBUTEROL [Concomitant]
     Active Substance: ALBUTEROL
     Dosage: 2.5MG
  16. ADVAIR HFA [Concomitant]
     Active Substance: FLUTICASONE PROPIONATE\SALMETEROL XINAFOATE
  17. NEURONTIN [Concomitant]
     Active Substance: GABAPENTIN
  18. ZOLOFT [Concomitant]
     Active Substance: SERTRALINE HYDROCHLORIDE
  19. SINGULAIR [Concomitant]
     Active Substance: MONTELUKAST SODIUM
  20. LOSARTAN POTASSIUM [Concomitant]
     Active Substance: LOSARTAN POTASSIUM
     Dosage: 50 MG
  21. ASPIRIN [Concomitant]
     Active Substance: ASPIRIN
     Dosage: 81MG
  22. ADVAIR HFA [Concomitant]
     Active Substance: FLUTICASONE PROPIONATE\SALMETEROL XINAFOATE
  23. PROMETHAZINE [Concomitant]
     Active Substance: PROMETHAZINE HYDROCHLORIDE
     Dosage: 12.5 MG
  24. PSEUDOEPHEDRINE [Concomitant]
     Active Substance: PSEUDOEPHEDRINE
     Dosage: 30 MG

REACTIONS (2)
  - Onychoclasis [Unknown]
  - Urinary tract infection [Unknown]
